FAERS Safety Report 6981415-4 (Version None)
Quarter: 2010Q3

REPORT INFORMATION
  Report Type: 
  Country: None (occurrence: None)
  Receive Date: 20100914
  Receipt Date: 20100902
  Transmission Date: 20110219
  Serious: Yes (Other)
  Sender: FDA-Public Use
  Company Number: US-B.I. PHARMACEUTICALS,INC./RIDGEFIELD-2010-DE-04847GD

PATIENT
  Sex: Male

DRUGS (15)
  1. PRAMIPEXOLE [Suspect]
     Indication: PARKINSON'S DISEASE
     Dosage: 0.75 MG
     Dates: end: 20030101
  2. PRAMIPEXOLE [Suspect]
     Dosage: 4 MG
     Dates: start: 20030101, end: 20071101
  3. PRAMIPEXOLE [Suspect]
     Dosage: 5 MG
     Dates: start: 20071101, end: 20080101
  4. PRAMIPEXOLE [Suspect]
     Dosage: 5.5 MG
     Dates: start: 20080101
  5. AMANTADINE [Suspect]
     Indication: PARKINSON'S DISEASE
     Dosage: 200 MG
     Dates: start: 20070901
  6. SELEGILINE [Suspect]
     Indication: PARKINSON'S DISEASE
     Dosage: 10 MG
     Dates: end: 20070801
  7. ENTACAPONE [Suspect]
     Indication: PARKINSON'S DISEASE
     Dosage: 1000 MG
     Dates: start: 20060101, end: 20070801
  8. ENTACAPONE [Suspect]
     Dosage: 800 MG
     Dates: start: 20071101, end: 20080401
  9. ENTACAPONE [Suspect]
     Dosage: 1000 MG
     Dates: start: 20080401
  10. CARBIDOPA AND LEVODOPA [Suspect]
     Indication: PARKINSON'S DISEASE
     Dosage: CARBIDOPA/LEVODOPA 75/300 MG
     Dates: start: 20040101, end: 20050101
  11. CARBIDOPA AND LEVODOPA [Suspect]
     Dosage: CARBIDOPA/LEVODOPA 125/500 MG
     Dates: start: 20050101, end: 20060101
  12. CARBIDOPA AND LEVODOPA [Suspect]
     Dosage: CARBIDOPA/LEVODOPA 125/500 MG (5 DIVIDED DOSES) PLUS 50/200 MG SUSTAINED RELEASE (2 DIVIDED DOSES)
     Dates: start: 20060101, end: 20070101
  13. CARBIDOPA AND LEVODOPA [Suspect]
     Dosage: CARBIDOPA/LEVODOPA 125/500 MG (5 DIVIDED DOSES) PLUS 75/300 MG SUSTAINED RELEASE (3 DIVIDED DOSES)
     Dates: start: 20070101, end: 20080401
  14. CARBIDOPA AND LEVODOPA [Suspect]
     Dosage: CARBIDOPA/LEVODOPA 75/300 MG (3 DIVIDED DOSES) PLUS 75/300 MG SUSTAINED RELEASE (2 DIVIDED DOSES)
     Dates: start: 20080401, end: 20080501
  15. CARBIDOPA AND LEVODOPA [Suspect]
     Dosage: CARBIDOPA/LEVODOPA 100/400 MG (4 DIVIDED DOSES) PLUS 175/700 MG SUSTAINED RELEASE (4 DIVIDED DOSES)
     Dates: start: 20080501

REACTIONS (8)
  - ABNORMAL DREAMS [None]
  - AGGRESSION [None]
  - DYSKINESIA [None]
  - DYSTONIA [None]
  - FALL [None]
  - HALLUCINATIONS, MIXED [None]
  - INSOMNIA [None]
  - PATHOLOGICAL GAMBLING [None]
